FAERS Safety Report 18260711 (Version 1)
Quarter: 2020Q3

REPORT INFORMATION
  Report Type: Spontaneous
  Country: CN (occurrence: CN)
  Receive Date: 20200914
  Receipt Date: 20200914
  Transmission Date: 20201103
  Serious: Yes (Hospitalization, Other)
  Sender: FDA-Public Use
  Company Number: CN-PFIZER INC-2020349838

PATIENT
  Age: 54 Year
  Sex: Female

DRUGS (8)
  1. SODIUM CHLORIDE. [Concomitant]
     Active Substance: SODIUM CHLORIDE
     Indication: GASTRIC CANCER
     Dosage: 500 ML, 1X/DAY
     Route: 041
     Dates: start: 20200702, end: 20200702
  2. CALCIUM LEVOFOLINATE [Concomitant]
     Active Substance: LEVOLEUCOVORIN CALCIUM
     Indication: GASTRIC CANCER
     Dosage: 300 MG, 1X/DAY
     Route: 041
     Dates: start: 20200702, end: 20200702
  3. SODIUM CHLORIDE. [Concomitant]
     Active Substance: SODIUM CHLORIDE
     Dosage: 230 ML, 1X/DAY
     Route: 042
     Dates: start: 20200702, end: 20200702
  4. ANZATAX [PACLITAXEL] [Suspect]
     Active Substance: PACLITAXEL
     Indication: GASTRIC CANCER
     Dosage: 180 MG, 1X/DAY
     Route: 041
     Dates: start: 20200702, end: 20200702
  5. OXALIPLATIN. [Suspect]
     Active Substance: OXALIPLATIN
     Indication: GASTRIC CANCER
     Dosage: 120 MG, 1X/DAY
     Route: 041
     Dates: start: 20200702, end: 20200702
  6. GLUCOSE [Concomitant]
     Active Substance: DEXTROSE
     Indication: GASTRIC CANCER
     Dosage: 500 ML, 1X/DAY
     Route: 041
     Dates: start: 20200702, end: 20200702
  7. 5?FU [FLUOROURACIL] [Suspect]
     Active Substance: FLUOROURACIL
     Indication: GASTRIC CANCER
     Dosage: 3 G, 1X/DAY
     Route: 042
     Dates: start: 20200702, end: 20200702
  8. SODIUM CHLORIDE. [Concomitant]
     Active Substance: SODIUM CHLORIDE
     Dosage: 250 ML, 1X/DAY
     Route: 041
     Dates: start: 20200702, end: 20200702

REACTIONS (2)
  - Drug-induced liver injury [Recovered/Resolved]
  - Hepatic function abnormal [Recovered/Resolved]

NARRATIVE: CASE EVENT DATE: 20200708
